FAERS Safety Report 16361854 (Version 6)
Quarter: 2020Q2

REPORT INFORMATION
  Report Type: Spontaneous
  Country: US (occurrence: US)
  Receive Date: 20190528
  Receipt Date: 20200618
  Transmission Date: 20200713
  Serious: Yes (Other)
  Sender: FDA-Public Use
  Company Number: US-PFIZER INC-2019225180

PATIENT
  Age: 40 Year
  Sex: Male

DRUGS (25)
  1. KEPPRA [Concomitant]
     Active Substance: LEVETIRACETAM
     Indication: SEIZURE
     Dosage: 500 MG, 2X/DAY
     Route: 048
  2. HALOPERIDOL LACTATE. [Concomitant]
     Active Substance: HALOPERIDOL LACTATE
     Indication: AGITATION
     Dosage: 5 MG, AS NEEDED, EVERY 4 HOURS
     Route: 030
  3. INVEGA SUSTENNA [Concomitant]
     Active Substance: PALIPERIDONE PALMITATE
     Indication: PSYCHOTIC DISORDER
     Dosage: 1.5 ML, MONTHLY
     Route: 030
     Dates: start: 20160908, end: 20170907
  4. DILANTIN [Suspect]
     Active Substance: PHENYTOIN
     Indication: SEIZURE
     Dosage: 100 MG, 3X/DAY
     Route: 048
  5. HALDOL [Concomitant]
     Active Substance: HALOPERIDOL
     Indication: AGITATION
     Dosage: 5 MG, AS NEEDED, EVERY 4 HOURS
     Route: 048
  6. MAGNESIUM HYDROXIDE. [Concomitant]
     Active Substance: MAGNESIUM HYDROXIDE
     Indication: CONSTIPATION
     Dosage: 30 ML, AS NEEDED, SUSPENSION
     Route: 048
  7. DILANTIN [Suspect]
     Active Substance: PHENYTOIN
     Dosage: 100 MG, ALTERNATE DAY
     Route: 048
     Dates: start: 20100108
  8. RISPERDAL [Concomitant]
     Active Substance: RISPERIDONE
     Dosage: 4 MG, 1X/DAY, BED TIME
  9. TYLENOL [Concomitant]
     Active Substance: ACETAMINOPHEN
     Indication: PAIN
     Dosage: 325 MG, AS NEEDED, EVERY 4 HOURS
     Route: 048
  10. BENZTROPINE. [Concomitant]
     Active Substance: BENZTROPINE
     Dosage: 0.5 MG, 1X/DAY
     Route: 048
     Dates: start: 20170105
  11. COGENTIN [Concomitant]
     Active Substance: BENZTROPINE MESYLATE
     Indication: SEIZURE
     Dosage: 0.5 MG, 2X/DAY
     Route: 048
  12. PHENOBARBITAL. [Concomitant]
     Active Substance: PHENOBARBITAL
     Indication: SEIZURE
     Dosage: 30 MG, DAILY
     Route: 048
  13. DEPAKOTE ER [Concomitant]
     Active Substance: DIVALPROEX SODIUM
     Dosage: 500 MG, 3X/DAY
     Route: 048
     Dates: start: 20181218
  14. DILANTIN [Suspect]
     Active Substance: PHENYTOIN
     Indication: SEIZURE
     Dosage: 100 MG, 3X/DAY, AS NEEDED
     Route: 048
  15. RISPERDAL [Concomitant]
     Active Substance: RISPERIDONE
     Indication: PSYCHOTIC DISORDER
     Dosage: 1 MG, 2X/DAY, FOR 30 DAYS
     Route: 048
  16. INVEGA SUSTENNA [Concomitant]
     Active Substance: PALIPERIDONE PALMITATE
     Dosage: 1 ML, MONTHLY
     Route: 030
     Dates: start: 20170907
  17. INVEGA SUSTENNA [Concomitant]
     Active Substance: PALIPERIDONE PALMITATE
     Dosage: 1.5 ML, MONTHLY
     Route: 030
     Dates: start: 20190723
  18. RISPERDAL CONSTA [Concomitant]
     Active Substance: RISPERIDONE
     Dosage: 3 ML (37.5 MG), EVERY 14 DAYS
     Route: 042
  19. GEODON [Concomitant]
     Active Substance: ZIPRASIDONE HYDROCHLORIDE\ZIPRASIDONE MESYLATE
     Dosage: 80 MG, UNK
     Dates: start: 20110301
  20. TEMAZEPAM. [Concomitant]
     Active Substance: TEMAZEPAM
     Indication: PAIN
     Dosage: 15 MG, AS NEEDED
  21. DOCUSATE SODIUM. [Concomitant]
     Active Substance: DOCUSATE SODIUM
     Indication: CONSTIPATION
     Dosage: 100 MG, AS NEEDED
     Route: 048
  22. ATIVAN [Concomitant]
     Active Substance: LORAZEPAM
     Indication: AGITATION
     Dosage: 0.5 MG, AS NEEDED, EVERY 4 HOURS
     Route: 030
  23. VALIUM [Concomitant]
     Active Substance: DIAZEPAM
     Indication: SEIZURE
     Dosage: 5 MG, UNK
     Route: 042
  24. INVEGA [Concomitant]
     Active Substance: PALIPERIDONE
     Indication: PSYCHOTIC DISORDER
     Dosage: UNK UNK, MONTHLY
  25. LUMINAL [Concomitant]
     Active Substance: PHENOBARBITAL SODIUM
     Indication: SEIZURE
     Dosage: 64.8 MG, 3X/DAY
     Route: 048

REACTIONS (10)
  - Posterior cortical atrophy [Unknown]
  - Electrolyte imbalance [Unknown]
  - Speech disorder [Unknown]
  - Cerebellar atrophy [Unknown]
  - Migraine [Unknown]
  - Emotional disorder [Unknown]
  - Dystonia [Unknown]
  - Insomnia [Unknown]
  - Limb injury [Unknown]
  - Eye disorder [Recovered/Resolved]

NARRATIVE: CASE EVENT DATE: 20110228
